FAERS Safety Report 5597428-3 (Version None)
Quarter: 2008Q1

REPORT INFORMATION
  Report Type: 
  Country: None (occurrence: None)
  Receive Date: 20080121
  Receipt Date: 20080111
  Transmission Date: 20080703
  Serious: Yes (Life-Threatening, Hospitalization, Other)
  Sender: FDA-Public Use
  Company Number: JP-ELI_LILLY_AND_COMPANY-JP200801002742

PATIENT
  Sex: Male
  Weight: 65.1 kg

DRUGS (13)
  1. GEMZAR [Suspect]
     Indication: LARGE CELL LUNG CANCER STAGE IV
     Dosage: 1400 MG, OTHER
     Route: 042
     Dates: start: 20070510, end: 20070510
  2. GEMZAR [Suspect]
     Dosage: 1000 MG, OTHER
     Route: 042
     Dates: start: 20070517, end: 20071212
  3. CISPLATIN [Concomitant]
     Indication: LARGE CELL LUNG CANCER STAGE IV
     Dosage: 120 MG, OTHER
     Route: 042
     Dates: start: 20070510, end: 20070510
  4. CISPLATIN [Concomitant]
     Dosage: 30 MG, OTHER
     Route: 042
     Dates: start: 20070607, end: 20071003
  5. VOLTAREN [Concomitant]
     Indication: PAIN
     Dosage: 50 MG, AS NEEDED
     Route: 054
     Dates: start: 20070427
  6. LENDORMIN [Concomitant]
     Dosage: 0.25 MG, DAILY (1/D)
     Route: 048
     Dates: start: 20070510
  7. GASTER D [Concomitant]
     Dosage: 20 MG, 2/D
     Route: 048
     Dates: start: 20070517
  8. LOXONIN [Concomitant]
     Dosage: 60 MG, 3/D
     Route: 048
     Dates: start: 20070517
  9. NORVASC [Concomitant]
     Dosage: 2.5 MG, DAILY (1/D)
     Route: 048
     Dates: start: 20070603
  10. OXYCONTIN [Concomitant]
     Dosage: 5 MG, 2/D
     Route: 048
     Dates: start: 20071102
  11. NOVAMIN [Concomitant]
     Dosage: 5 MG, 3/D
     Route: 065
     Dates: start: 20071102
  12. MAGMITT [Concomitant]
     Dosage: 330 MG, 3/D
     Route: 048
     Dates: start: 20071102
  13. OXYNORM [Concomitant]
     Dosage: 5 MG, AS NEEDED
     Route: 048
     Dates: start: 20071102

REACTIONS (11)
  - HAEMATOCRIT DECREASED [None]
  - HAEMOGLOBIN DECREASED [None]
  - LYMPHADENOPATHY [None]
  - LYMPHOCYTE COUNT DECREASED [None]
  - MALIGNANT NEOPLASM PROGRESSION [None]
  - METASTASES TO ADRENALS [None]
  - METASTASES TO PERITONEUM [None]
  - PNEUMONIA [None]
  - RED BLOOD CELL COUNT DECREASED [None]
  - RENAL IMPAIRMENT [None]
  - WHITE BLOOD CELL COUNT DECREASED [None]
